FAERS Safety Report 4591360-X (Version None)
Quarter: 2005Q1

REPORT INFORMATION
  Report Type: 
  Country: None (occurrence: None)
  Receive Date: 20050222
  Receipt Date: 20050222
  Transmission Date: 20050727
  Serious: Yes (Hospitalization)
  Sender: FDA-Public Use
  Company Number: None

PATIENT
  Age: 17 Year
  Sex: Male
  Weight: 64.4108 kg

DRUGS (1)
  1. PATELLAR TENDON-HEMI         CRYOLIFE INC [Suspect]

REACTIONS (3)
  - BETA HAEMOLYTIC STREPTOCOCCAL INFECTION [None]
  - GRAFT INFECTION [None]
  - POSTOPERATIVE INFECTION [None]
